FAERS Safety Report 8765655 (Version 2)
Quarter: 2012Q4

REPORT INFORMATION
  Report Type: 
  Country: JP (occurrence: JP)
  Receive Date: 20120904
  Receipt Date: 20120907
  Transmission Date: 20130627
  Serious: Yes (Hospitalization)
  Sender: FDA-Public Use
  Company Number: JP-JNJFOC-20120813015

PATIENT
  Age: 72 Year
  Sex: Male

DRUGS (8)
  1. FINIBAX [Suspect]
     Indication: DEVICE RELATED INFECTION
     Route: 041
     Dates: start: 20120609, end: 20120623
  2. CARDENALIN [Concomitant]
     Route: 048
  3. CLARITH [Concomitant]
     Route: 048
  4. DIOVAN [Concomitant]
     Route: 048
  5. TENORMIN [Concomitant]
     Route: 048
  6. MUCOSOLVAN [Concomitant]
     Route: 048
  7. LIPITOR [Concomitant]
     Route: 048
  8. GLUFAST [Concomitant]
     Route: 048
     Dates: start: 20120610, end: 20120719

REACTIONS (1)
  - Erythema multiforme [Recovered/Resolved]
